FAERS Safety Report 22318021 (Version 1)
Quarter: 2023Q2

REPORT INFORMATION
  Report Type: Spontaneous
  Country: US (occurrence: US)
  Receive Date: 20230515
  Receipt Date: 20230515
  Transmission Date: 20230721
  Serious: No
  Sender: FDA-Public Use
  Company Number: US-UCBSA-2022037385

PATIENT
  Sex: Male

DRUGS (4)
  1. NEUPRO [Suspect]
     Active Substance: ROTIGOTINE
     Indication: Restless legs syndrome
     Dosage: 3 MILLIGRAM, ONCE DAILY (QD)
     Route: 062
     Dates: start: 20190628
  2. NEUPRO [Suspect]
     Active Substance: ROTIGOTINE
     Dosage: 1 MILLIGRAM, ONCE DAILY (QD)
  3. NEUPRO [Suspect]
     Active Substance: ROTIGOTINE
     Dosage: 2 MILLIGRAM, ONCE DAILY (QD)
  4. NEUPRO [Suspect]
     Active Substance: ROTIGOTINE
     Dosage: 4 MILLIGRAM, ONCE DAILY (QD)

REACTIONS (2)
  - Application site pain [Not Recovered/Not Resolved]
  - Product use issue [Unknown]
